FAERS Safety Report 16155176 (Version 1)
Quarter: 2019Q2

REPORT INFORMATION
  Report Type: Spontaneous
  Country: US (occurrence: US)
  Receive Date: 20190403
  Receipt Date: 20190403
  Transmission Date: 20190711
  Serious: Yes (Hospitalization, Other)
  Sender: FDA-Public Use
  Company Number: US-009507513-1903USA011409

PATIENT
  Sex: Female
  Weight: 70.75 kg

DRUGS (1)
  1. NUVARING [Suspect]
     Active Substance: ETHINYL ESTRADIOL\ETONOGESTREL
     Indication: CONTRACEPTION
     Dosage: UNK
     Route: 067
     Dates: start: 2007, end: 2016

REACTIONS (9)
  - Pulmonary mass [Unknown]
  - Nausea [Unknown]
  - Tricuspid valve incompetence [Unknown]
  - Abortion spontaneous [Recovered/Resolved]
  - Psoriasis [Unknown]
  - Acute respiratory failure [Unknown]
  - Pulmonary embolism [Recovering/Resolving]
  - Iron deficiency [Unknown]
  - Drug exposure before pregnancy [Unknown]

NARRATIVE: CASE EVENT DATE: 20160819
